FAERS Safety Report 24224984 (Version 2)
Quarter: 2024Q3

REPORT INFORMATION
  Report Type: Report from Study
  Country: CA (occurrence: CA)
  Receive Date: 20240820
  Receipt Date: 20240913
  Transmission Date: 20241016
  Serious: Yes (Other)
  Sender: ABBVIE
  Company Number: CA-ABBVIE-5880939

PATIENT
  Age: 85 Year
  Sex: Male
  Weight: 93 kg

DRUGS (4)
  1. LUPRON DEPOT [Suspect]
     Active Substance: LEUPROLIDE ACETATE
     Indication: Prostate cancer
     Route: 030
     Dates: start: 20240215, end: 20240515
  2. DAROLUTAMIDE [Concomitant]
     Active Substance: DAROLUTAMIDE
     Indication: Product used for unknown indication
  3. HYDROMORPHONE [Concomitant]
     Active Substance: HYDROMORPHONE
     Indication: Product used for unknown indication
  4. FILGRASTIM [Concomitant]
     Active Substance: FILGRASTIM
     Indication: Product used for unknown indication

REACTIONS (15)
  - Injection site infection [Recovered/Resolved]
  - Purulent discharge [Recovered/Resolved]
  - Injection site swelling [Recovering/Resolving]
  - Superficial vein thrombosis [Unknown]
  - Injection site erythema [Unknown]
  - Poor quality device used [Unknown]
  - Arthralgia [Unknown]
  - Injection site discharge [Recovering/Resolving]
  - Injection site induration [Recovering/Resolving]
  - Injection site pain [Unknown]
  - Injection site haematoma [Unknown]
  - Injection site abscess [Unknown]
  - Cellulitis [Unknown]
  - Wrong technique in product usage process [Unknown]
  - Inflammation [Unknown]

NARRATIVE: CASE EVENT DATE: 20240101
